FAERS Safety Report 23266526 (Version 1)
Quarter: 2023Q4

REPORT INFORMATION
  Report Type: Spontaneous
  Country: US (occurrence: US)
  Receive Date: 20231206
  Receipt Date: 20231206
  Transmission Date: 20240110
  Serious: Yes (Hospitalization)
  Sender: FDA-Public Use
  Company Number: US-MYLANLABS-2023M1129587

PATIENT
  Sex: Male

DRUGS (6)
  1. INSULIN NOS [Suspect]
     Active Substance: INSULIN NOS
     Indication: Type 2 diabetes mellitus
     Dosage: UNK, TID, 160 UNITS THRICE A DAY
     Route: 065
  2. INSULIN NOS [Suspect]
     Active Substance: INSULIN NOS
     Dosage: UNK,40?UNITS THRICE A DAY, DOSE REDUCED
     Route: 065
  3. LANTUS [Suspect]
     Active Substance: INSULIN GLARGINE
     Indication: Type 2 diabetes mellitus
     Dosage: UNK, BID, 65 UNITS
     Route: 065
  4. LANTUS [Suspect]
     Active Substance: INSULIN GLARGINE
     Dosage: UNK UNK, BID, 110 UNITS
     Route: 065
  5. HUMALOG [Suspect]
     Active Substance: INSULIN LISPRO
     Indication: Type 2 diabetes mellitus
     Dosage: UNK UNK, TID,35 UNITS THRICE A DAY
     Route: 065
  6. HUMALOG [Suspect]
     Active Substance: INSULIN LISPRO
     Dosage: UNK UNK, TID, 65 UNITS THRICE A DAY
     Route: 065

REACTIONS (2)
  - Acanthosis nigricans [Unknown]
  - Gastrointestinal disorder [Unknown]
